FAERS Safety Report 6644577-4 (Version None)
Quarter: 2010Q1

REPORT INFORMATION
  Report Type: 
  Country: None (occurrence: None)
  Receive Date: 20100305
  Receipt Date: 20100216
  Transmission Date: 20100710
  Serious: No
  Sender: FDA-Public Use
  Company Number: 2010-00259

PATIENT
  Age: 53 Year
  Sex: Male
  Weight: 95.2554 kg

DRUGS (8)
  1. ZICAM COLD REMEDY RAPIDMELTS WITH VITAMIN C [Suspect]
     Dosage: Q 3 HRS - 2 HRS, 1 DAY
     Dates: start: 20100213, end: 20100213
  2. VYTORIN [Concomitant]
  3. FLOMAX [Concomitant]
  4. METOPROLOL ER SUCCINATE [Concomitant]
  5. PROTONIX [Concomitant]
  6. DORYX [Concomitant]
  7. VITAMIN C [Concomitant]
  8. GLUCOSAMINE/CHONDROTIN [Concomitant]

REACTIONS (1)
  - AGEUSIA [None]
